FAERS Safety Report 9891090 (Version 2)
Quarter: 2014Q1

REPORT INFORMATION
  Report Type: Other
  Country: US (occurrence: US)
  Receive Date: 20140212
  Receipt Date: 20140212
  Transmission Date: 20141002
  Serious: Yes (Other)
  Sender: FDA-Public Use
  Company Number: US-ACORDA-ACO_38847_2013

PATIENT
  Age: 56 Year
  Sex: Female

DRUGS (1)
  1. AMPYRA [Suspect]
     Indication: PRODUCT USED FOR UNKNOWN INDICATION
     Dosage: 10 MG, UNK
     Route: 065

REACTIONS (5)
  - Foot fracture [Unknown]
  - Arthritis [Unknown]
  - Bone marrow transplant [Unknown]
  - Anxiety [Not Recovered/Not Resolved]
  - Urinary tract infection [Recovered/Resolved]
